FAERS Safety Report 4724625-9 (Version None)
Quarter: 2005Q3

REPORT INFORMATION
  Report Type: 
  Country: None (occurrence: None)
  Receive Date: 20050726
  Receipt Date: 20050720
  Transmission Date: 20060218
  Serious: Yes (Death)
  Sender: FDA-Public Use
  Company Number: GB-MERCK-0507GBR00159

PATIENT
  Sex: Male

DRUGS (11)
  1. ZOCOR [Suspect]
     Route: 048
  2. ALLOPURINOL [Suspect]
     Route: 048
  3. PERINDOPRIL ERBUMINE [Suspect]
     Route: 048
  4. TIOTROPIUM BROMIDE [Suspect]
     Route: 055
  5. DIGOXIN [Suspect]
     Route: 048
  6. FUROSEMIDE [Suspect]
     Route: 048
  7. PANTOPRAZOLE [Suspect]
     Route: 048
  8. WARFARIN [Suspect]
     Route: 065
  9. BECLOMETHASONE DIPROPIONATE [Suspect]
     Route: 065
  10. ALBUTEROL [Suspect]
     Route: 055
  11. ACETAMINOPHEN [Suspect]
     Route: 065

REACTIONS (1)
  - AORTIC DISSECTION [None]
